FAERS Safety Report 21720430 (Version 1)
Quarter: 2022Q4

REPORT INFORMATION
  Report Type: Spontaneous
  Country: ES (occurrence: ES)
  Receive Date: 20221213
  Receipt Date: 20221213
  Transmission Date: 20230113
  Serious: Yes (Other)
  Sender: FDA-Public Use
  Company Number: None

PATIENT
  Age: 74 Year
  Sex: Male

DRUGS (8)
  1. ACYCLOVIR [Suspect]
     Active Substance: ACYCLOVIR
     Indication: Product used for unknown indication
     Dosage: (201A), UNIT DOSE : 800 MG, FREQUENCY TIME : 24 HOURS, DURATION : 14 DAYS
     Route: 065
     Dates: start: 20220906, end: 20220919
  2. LENALIDOMIDE [Suspect]
     Active Substance: LENALIDOMIDE
     Indication: Plasma cell myeloma
     Dosage: (8089A), UNIT DOSE : 25 MG, FREQUENCY TIME : 24 HOURS, DURATION : 14 DAYS
     Route: 065
     Dates: start: 20220906, end: 20220919
  3. OMEPRAZOLE [Suspect]
     Active Substance: OMEPRAZOLE
     Indication: Product used for unknown indication
     Dosage: (2141A), UNIT DOSE : 20 MG, FREQUENCY TIME : 1 DAYS, THERAPY END DATE : NASK
     Route: 065
     Dates: start: 20220906
  4. ENOXAPARIN SODIUM [Suspect]
     Active Substance: ENOXAPARIN SODIUM
     Indication: Product used for unknown indication
     Dosage: 4,000 IU (40 MG)/0.4 ML, 10 PRE-FILLED SYRINGES OF 0.4 ML, UNIT DOSE : 4000 IU, FREQUENCY TIME : 24
     Route: 065
     Dates: start: 20220906
  5. DARZALEX [Suspect]
     Active Substance: DARATUMUMAB
     Indication: Plasma cell myeloma
     Dosage: 1 VIAL OF 15 ML, FORM STRENGTH : 1800 MG, UNIT DOSE : 1800 MG, FREQUENCY TIME : 1 WEEKS, DURATION :
     Route: 065
     Dates: start: 20220906, end: 20220913
  6. MASTICAL D [Concomitant]
     Indication: Product used for unknown indication
     Dosage: 500 MG/400 IU, STRAWBERRY FLAVOR, 60 TABLETS, UNIT DOSE : 1 DOSAGE FORMS, FREQUENCY TIME : 24 HOURS
     Route: 065
     Dates: start: 20220906
  7. ZOLEDRONIC ACID [Concomitant]
     Active Substance: ZOLEDRONIC ACID
     Indication: Product used for unknown indication
     Dosage: (1251A), UNIT DOSE : 4 MG, FREQUENCY TIME : 1 MONTHS, DURATION : 1 DAYS
     Route: 065
     Dates: start: 20220906, end: 20220906
  8. DEXAMETHASON TAD [Concomitant]
     Indication: Plasma cell myeloma
     Dosage: 30 TABLETS, FORM STRENGTH : 20 MG, UNIT DOSE : 20 MG, DURATION : 9 DAYS
     Route: 065
     Dates: start: 20220906, end: 20220914

REACTIONS (1)
  - Mixed liver injury [Recovered/Resolved]

NARRATIVE: CASE EVENT DATE: 20220919
